FAERS Safety Report 7001311-6 (Version None)
Quarter: 2010Q3

REPORT INFORMATION
  Report Type: 
  Country: None (occurrence: None)
  Receive Date: 20100920
  Receipt Date: 20100105
  Transmission Date: 20110219
  Serious: No
  Sender: FDA-Public Use
  Company Number: US-ASTRAZENECA-2007UW25038

PATIENT
  Sex: Female
  Weight: 108.9 kg

DRUGS (7)
  1. SEROQUEL [Suspect]
     Indication: MENTAL DISORDER
     Route: 048
  2. SEROQUEL [Suspect]
     Indication: NEGATIVE THOUGHTS
     Route: 048
  3. SEROQUEL [Suspect]
     Indication: PARANOIA
     Route: 048
  4. SEROQUEL [Suspect]
     Route: 048
  5. SEROQUEL [Suspect]
     Route: 048
  6. SEROQUEL [Suspect]
     Route: 048
  7. ZOLOFT [Concomitant]

REACTIONS (13)
  - CHEST PAIN [None]
  - DRY MOUTH [None]
  - ELECTROCARDIOGRAM ABNORMAL [None]
  - FOOD CRAVING [None]
  - GAIT DISTURBANCE [None]
  - HYPOAESTHESIA [None]
  - LABORATORY TEST ABNORMAL [None]
  - MIDDLE INSOMNIA [None]
  - PAIN [None]
  - PARAESTHESIA [None]
  - SOMNOLENCE [None]
  - THIRST [None]
  - WEIGHT INCREASED [None]
